FAERS Safety Report 5917985-4 (Version None)
Quarter: 2008Q4

REPORT INFORMATION
  Report Type: 
  Country: None (occurrence: None)
  Receive Date: 20081014
  Receipt Date: 20081003
  Transmission Date: 20090506
  Serious: Yes (Other)
  Sender: FDA-Public Use
  Company Number: US-ELI_LILLY_AND_COMPANY-US200810000980

PATIENT
  Sex: Female
  Weight: 77.551 kg

DRUGS (8)
  1. BYETTA [Suspect]
     Indication: TYPE 2 DIABETES MELLITUS
     Dosage: 10 UG, DAILY (1/D)
     Route: 058
     Dates: start: 20080401, end: 20080501
  2. BYETTA [Suspect]
     Dosage: 5 UG, DAILY (1/D)
     Route: 058
     Dates: start: 20080501, end: 20080801
  3. GLIPIZIDE [Concomitant]
     Indication: TYPE 2 DIABETES MELLITUS
     Dosage: 10 MG, DAILY (1/D)
  4. TRIAMTERENE [Concomitant]
     Indication: FLUID RETENTION
     Dosage: 37.5 MG, DAILY (1/D)
  5. ENABLEX                            /01760402/ [Concomitant]
     Indication: FLUID RETENTION
     Dosage: 7.5 MG, EACH EVENING
  6. NADOLOL [Concomitant]
     Indication: TREMOR
     Dosage: 10 MG, EACH EVENING
  7. ZOCOR [Concomitant]
     Indication: BLOOD CHOLESTEROL INCREASED
     Dosage: 40 MG, EACH EVENING
  8. FORTAMET [Concomitant]
     Indication: TYPE 2 DIABETES MELLITUS
     Dosage: 1000 MG, DAILY (1/D)
     Route: 048

REACTIONS (10)
  - ABDOMINAL PAIN UPPER [None]
  - BLINDNESS TRANSIENT [None]
  - BLOOD GLUCOSE INCREASED [None]
  - DIARRHOEA [None]
  - HEADACHE [None]
  - LOSS OF CONSCIOUSNESS [None]
  - MOBILITY DECREASED [None]
  - NAUSEA [None]
  - PAIN IN EXTREMITY [None]
  - VISION BLURRED [None]
